FAERS Safety Report 6239167-1 (Version None)
Quarter: 2009Q2

REPORT INFORMATION
  Report Type: 
  Country: None (occurrence: None)
  Receive Date: 20090622
  Receipt Date: 20090609
  Transmission Date: 20091009
  Serious: Yes (Other)
  Sender: FDA-Public Use
  Company Number: FR-GENENTECH-284957

PATIENT
  Sex: Female

DRUGS (3)
  1. RITUXIMAB [Suspect]
     Indication: MANTLE CELL LYMPHOMA
     Dosage: 600 MG, UNK
     Route: 065
     Dates: start: 20070827, end: 20080114
  2. FLUDARABINE PHOSPHATE [Suspect]
     Indication: MANTLE CELL LYMPHOMA
     Dosage: 45 MG, UNK
     Route: 065
     Dates: start: 20070827, end: 20071212
  3. CYCLOPHOSPHAMIDE [Suspect]
     Indication: MANTLE CELL LYMPHOMA
     Dosage: 375 MG, UNK
     Route: 065
     Dates: start: 20070827, end: 20071212

REACTIONS (1)
  - BOWEN'S DISEASE [None]
